FAERS Safety Report 25777932 (Version 3)
Quarter: 2025Q4

REPORT INFORMATION
  Report Type: Spontaneous
  Country: JP (occurrence: JP)
  Receive Date: 20250909
  Receipt Date: 20251009
  Transmission Date: 20260117
  Serious: Yes (Other)
  Sender: GLAXOSMITHKLINE
  Company Number: JP-GSKJP-JP2025JPN112664AA

PATIENT
  Age: 62 Year
  Sex: Female

DRUGS (8)
  1. DAPRODUSTAT [Suspect]
     Active Substance: DAPRODUSTAT
     Indication: Nephrogenic anaemia
     Dosage: 2 MG, 1D
  2. SAMSCA [Concomitant]
     Active Substance: TOLVAPTAN
     Indication: Congenital cystic kidney disease
     Dosage: 30 MG, THREE TABLETS IN TWO DIVIDED DOSES (2-1, UNEVEN DOSAGE)
  3. DOXAZOSIN [Concomitant]
     Active Substance: DOXAZOSIN MESYLATE
     Dosage: 1 MG, 1D
  4. DOXAZOSIN [Concomitant]
     Active Substance: DOXAZOSIN MESYLATE
     Dosage: 2 MG, 1D
  5. FEBUXOSTAT [Concomitant]
     Active Substance: FEBUXOSTAT
     Dosage: 10 MG, 1D
  6. BILASTINE [Concomitant]
     Active Substance: BILASTINE
     Dosage: UNK
  7. MONTELUKAST [Concomitant]
     Active Substance: MONTELUKAST
     Dosage: 10 MG
  8. CALONAL [Concomitant]
     Active Substance: ACETAMINOPHEN
     Dosage: 500 MG

REACTIONS (2)
  - Retinal degeneration [Unknown]
  - Abdominal pain [Unknown]

NARRATIVE: CASE EVENT DATE: 20230731
